FAERS Safety Report 17997708 (Version 1)
Quarter: 2020Q3

REPORT INFORMATION
  Report Type: Spontaneous
  Country: US (occurrence: US)
  Receive Date: 20200709
  Receipt Date: 20200709
  Transmission Date: 20201103
  Serious: No
  Sender: FDA-Public Use
  Company Number: US-BAUSCH-BL-2019-064245

PATIENT
  Age: 34 Year
  Sex: Male
  Weight: 78.09 kg

DRUGS (1)
  1. RIFAXIMIN. [Suspect]
     Active Substance: RIFAXIMIN
     Indication: IRRITABLE BOWEL SYNDROME
     Dosage: TWICE A DAY SOMETIME THRICE A DAY
     Route: 065
     Dates: start: 201906

REACTIONS (5)
  - Insurance issue [Unknown]
  - Therapy interrupted [Unknown]
  - Symptom recurrence [Unknown]
  - Dyspepsia [Unknown]
  - Spondylitis [Unknown]
